FAERS Safety Report 11117515 (Version 1)
Quarter: 2015Q2

REPORT INFORMATION
  Report Type: Spontaneous
  Country: US (occurrence: US)
  Receive Date: 20150516
  Receipt Date: 20150516
  Transmission Date: 20150821
  Serious: Yes (Hospitalization, Other)
  Sender: FDA-Public Use
  Company Number: US-B.I. PHARMACEUTICALS,INC./RIDGEFIELD-2015-BI-25295BP

PATIENT
  Age: 83 Year
  Sex: Female

DRUGS (5)
  1. COMBIVENT [Suspect]
     Active Substance: ALBUTEROL SULFATE\IPRATROPIUM BROMIDE
     Indication: BRONCHITIS CHRONIC
     Dosage: DOSE PER APPLICATION: 18 MCG / 103 MCG;
     Route: 055
     Dates: start: 1997, end: 2015
  2. BABY ASPIRIN [Concomitant]
     Active Substance: ASPIRIN
     Indication: PRODUCT USED FOR UNKNOWN INDICATION
     Dosage: 81 MG
     Route: 048
  3. LEVOTHYROXINE [Concomitant]
     Active Substance: LEVOTHYROXINE
     Indication: HYPOTHYROIDISM
     Dosage: 75 MCG
     Route: 048
  4. TRAMADOL [Concomitant]
     Active Substance: TRAMADOL
     Indication: BACK PAIN
     Route: 048
  5. TRAMADOL [Concomitant]
     Active Substance: TRAMADOL
     Indication: PAIN IN EXTREMITY

REACTIONS (9)
  - Blindness [Not Recovered/Not Resolved]
  - Deafness [Not Recovered/Not Resolved]
  - Atrial fibrillation [Recovered/Resolved]
  - Confusional state [Not Recovered/Not Resolved]
  - Macular degeneration [Not Recovered/Not Resolved]
  - Hot flush [Recovered/Resolved]
  - Nerve injury [Not Recovered/Not Resolved]
  - Kidney infection [Recovered/Resolved]
  - Insomnia [Recovered/Resolved]

NARRATIVE: CASE EVENT DATE: 1999
